FAERS Safety Report 5629089-9 (Version None)
Quarter: 2008Q1

REPORT INFORMATION
  Report Type: 
  Country: None (occurrence: None)
  Receive Date: 20080216
  Receipt Date: 20071218
  Transmission Date: 20080703
  Serious: Yes (Other)
  Sender: FDA-Public Use
  Company Number: US-PURDUE-USA_2007_0031631

PATIENT
  Sex: Male

DRUGS (1)
  1. OXYCONTIN [Suspect]
     Indication: ARTHRITIS
     Dosage: 80 MG, SEE TEXT
     Dates: start: 20010401, end: 20030801

REACTIONS (18)
  - ABDOMINAL PAIN UPPER [None]
  - CONSTIPATION [None]
  - DEPRESSION [None]
  - DETOXIFICATION [None]
  - FAMILY STRESS [None]
  - GASTRIC ULCER [None]
  - GASTROINTESTINAL DISORDER [None]
  - INSOMNIA [None]
  - INTESTINAL FUNCTIONAL DISORDER [None]
  - MUSCLE SPASMS [None]
  - OEDEMA PERIPHERAL [None]
  - PAIN [None]
  - RASH [None]
  - SOCIAL AVOIDANT BEHAVIOUR [None]
  - SUICIDAL IDEATION [None]
  - VOMITING [None]
  - WEIGHT DECREASED [None]
  - WEIGHT INCREASED [None]
